FAERS Safety Report 5630796-2 (Version None)
Quarter: 2008Q1

REPORT INFORMATION
  Report Type: 
  Country: None (occurrence: None)
  Receive Date: 20080213
  Receipt Date: 20080204
  Transmission Date: 20080703
  Serious: Yes (Death)
  Sender: FDA-Public Use
  Company Number: 2008-01018

PATIENT
  Age: 85 Year
  Sex: Female

DRUGS (5)
  1. FUROSEMIDE (WATSON LABORATORIES)(FUROSEMIDE) TABLET, 20MG [Suspect]
  2. CHLORDIAZEPOXIDE AND AMITRIPTYLINE [Suspect]
  3. OXYCODONE HCL AND ACETAMINOPHEN [Suspect]
  4. CARDIAC GLYCOSIDES() [Suspect]
  5. BENZODIAZEPINE DERIVATIVES() [Suspect]

REACTIONS (1)
  - DEATH [None]
